FAERS Safety Report 9649092 (Version 1)
Quarter: 2013Q4

REPORT INFORMATION
  Report Type: Spontaneous
  Country: US (occurrence: US)
  Receive Date: 20131028
  Receipt Date: 20131028
  Transmission Date: 20140711
  Serious: Yes (Death)
  Sender: FDA-Public Use
  Company Number: US-CUBIST PHARMACEUTICALS, INC.-2013CBST001035

PATIENT
  Sex: 0

DRUGS (3)
  1. CUBICIN [Suspect]
     Indication: STAPHYLOCOCCAL INFECTION
     Dosage: UNK, UNK, UNK
     Route: 065
  2. CUBICIN [Suspect]
     Indication: PLEURAL INFECTION
  3. CUBICIN [Suspect]
     Indication: OFF LABEL USE

REACTIONS (1)
  - Death [Fatal]
